FAERS Safety Report 7061377-4 (Version None)
Quarter: 2010Q4

REPORT INFORMATION
  Report Type: 
  Country: None (occurrence: None)
  Receive Date: 20101026
  Receipt Date: 20101021
  Transmission Date: 20110411
  Serious: Yes (Death, Other)
  Sender: FDA-Public Use
  Company Number: US-BRISTOL-MYERS SQUIBB COMPANY-15339815

PATIENT
  Age: 42 Year
  Sex: Male

DRUGS (10)
  1. ATAZANAVIR [Suspect]
     Indication: ANTIRETROVIRAL THERAPY
  2. RITONAVIR [Suspect]
     Indication: ANTIRETROVIRAL THERAPY
  3. LAMIVUDINE [Suspect]
     Indication: ANTIRETROVIRAL THERAPY
  4. ABACAVIR [Suspect]
     Indication: ANTIRETROVIRAL THERAPY
  5. FOSAMPRENAVIR CALCIUM [Suspect]
     Indication: ANTIRETROVIRAL THERAPY
  6. EMTRICITABINE [Suspect]
     Indication: ANTIRETROVIRAL THERAPY
  7. TENOFOVIR [Suspect]
     Indication: ANTIRETROVIRAL THERAPY
  8. ADEFOVIR DIPIVOXIL KIT [Suspect]
     Indication: ANTIRETROVIRAL THERAPY
  9. TELBIVUDINE [Suspect]
     Indication: ANTIRETROVIRAL THERAPY
  10. DARUNAVIR [Concomitant]
     Indication: ANTIRETROVIRAL THERAPY

REACTIONS (3)
  - ACUTE HEPATIC FAILURE [None]
  - HEPATIC CIRRHOSIS [None]
  - RENAL FAILURE [None]
